FAERS Safety Report 11586632 (Version 1)
Quarter: 2015Q3

REPORT INFORMATION
  Report Type: Spontaneous
  Country: US (occurrence: US)
  Receive Date: 20150916
  Receipt Date: 20150916
  Transmission Date: 20151125
  Serious: No
  Sender: FDA-Public Use
  Company Number: US-ELI_LILLY_AND_COMPANY-US200802006907

PATIENT
  Age: 83 Year
  Sex: Female

DRUGS (3)
  1. METOPROLOL [Concomitant]
     Active Substance: METOPROLOL
     Indication: HYPERTENSION
  2. DIOVAN [Concomitant]
     Active Substance: VALSARTAN
  3. FORTEO [Suspect]
     Active Substance: TERIPARATIDE
     Dates: start: 2007

REACTIONS (2)
  - Muscular weakness [Unknown]
  - Hypertension [Unknown]

NARRATIVE: CASE EVENT DATE: 20080227
